FAERS Safety Report 8434342-X (Version None)
Quarter: 2012Q2

REPORT INFORMATION
  Report Type: 
  Country: None (occurrence: None)
  Receive Date: 20120613
  Receipt Date: 20120612
  Transmission Date: 20120825
  Serious: Yes (Other)
  Sender: FDA-Public Use
  Company Number: ES-MERCK-1206ESP00016

PATIENT
  Age: 13 Year
  Sex: Male

DRUGS (1)
  1. SINGULAIR [Suspect]
     Indication: ASTHMA
     Route: 048
     Dates: start: 20110901

REACTIONS (4)
  - ANTISOCIAL BEHAVIOUR [None]
  - DEPRESSION [None]
  - HOSTILITY [None]
  - IRRITABILITY [None]
